FAERS Safety Report 14474189 (Version 1)
Quarter: 2018Q1

REPORT INFORMATION
  Report Type: Spontaneous
  Country: JP (occurrence: JP)
  Receive Date: 20180201
  Receipt Date: 20180201
  Transmission Date: 20180509
  Serious: Yes (Hospitalization)
  Sender: FDA-Public Use
  Company Number: JP-BAYER-2017-221422

PATIENT
  Age: 81 Year
  Sex: Male
  Weight: 57.7 kg

DRUGS (7)
  1. OLMETEC [Concomitant]
     Active Substance: OLMESARTAN MEDOXOMIL
     Indication: HYPERTENSION
     Dosage: DAILY DOSE 20 MG
     Route: 048
  2. XARELTO [Suspect]
     Active Substance: RIVAROXABAN
     Indication: EMBOLIC STROKE
     Dosage: DAILY DOSE 15 MG
     Route: 048
     Dates: start: 20140518, end: 20140622
  3. BAYASPIRIN 100 MG [Suspect]
     Active Substance: ASPIRIN
     Indication: MYOCARDIAL INFARCTION
     Dosage: DAILY DOSE 100 MG
     Route: 048
     Dates: end: 20140622
  4. CADUET [Concomitant]
     Active Substance: AMLODIPINE BESYLATE\ATORVASTATIN CALCIUM
     Indication: HYPERTENSION
     Dosage: UNK
     Route: 048
  5. ACINON [Concomitant]
     Active Substance: NIZATIDINE
     Indication: HYPERURICAEMIA
     Dosage: DAILY DOSE 300 MG
     Route: 048
  6. URIEF [Concomitant]
     Active Substance: SILODOSIN
     Indication: BENIGN PROSTATIC HYPERPLASIA
     Dosage: DAILY DOSE 8 MG
     Route: 048
     Dates: start: 20140520
  7. DEPAS [Concomitant]
     Active Substance: ETIZOLAM
     Indication: SLEEP DISORDER
     Dosage: DAILY DOSE .5 MG
     Route: 048
     Dates: start: 20140515

REACTIONS (2)
  - Headache [Recovered/Resolved]
  - Haemorrhagic cerebral infarction [Recovered/Resolved]

NARRATIVE: CASE EVENT DATE: 20140620
